FAERS Safety Report 6746113-0 (Version None)
Quarter: 2010Q2

REPORT INFORMATION
  Report Type: 
  Country: None (occurrence: None)
  Receive Date: 20100528
  Receipt Date: 20090909
  Transmission Date: 20101027
  Serious: No
  Sender: FDA-Public Use
  Company Number: US-ASTRAZENECA-2009SE12446

PATIENT
  Age: 59 Year
  Sex: Female
  Weight: 54.4 kg

DRUGS (7)
  1. PRILOSEC [Suspect]
     Indication: GASTROOESOPHAGEAL REFLUX DISEASE
     Route: 048
     Dates: start: 20090301, end: 20090701
  2. PRILOSEC [Suspect]
     Route: 048
     Dates: start: 20090701, end: 20090907
  3. PRILOSEC [Suspect]
     Route: 048
     Dates: start: 20090907, end: 20090909
  4. PULMICORT FLEXHALER [Concomitant]
  5. CORTEF [Concomitant]
  6. XANAX [Concomitant]
  7. PERCOCET [Concomitant]

REACTIONS (4)
  - BURNING SENSATION [None]
  - HYPOAESTHESIA ORAL [None]
  - INTENTIONAL OVERDOSE [None]
  - PRURITUS [None]
